FAERS Safety Report 17766395 (Version 2)
Quarter: 2022Q2

REPORT INFORMATION
  Report Type: Spontaneous
  Country: US (occurrence: US)
  Receive Date: 20200511
  Receipt Date: 20220503
  Transmission Date: 20220720
  Serious: No
  Sender: FDA-Public Use
  Company Number: US-PFIZER INC-2020187279

PATIENT
  Age: 55 Year
  Sex: Female

DRUGS (2)
  1. INLYTA [Suspect]
     Active Substance: AXITINIB
     Dosage: 5 MG
     Dates: start: 20200306
  2. INLYTA [Suspect]
     Active Substance: AXITINIB
     Dosage: TAKE 3 TABLETS (3 MG) TWICE DAILY
     Dates: start: 202003

REACTIONS (3)
  - Paranasal sinus discomfort [Unknown]
  - Upper respiratory tract infection [Recovering/Resolving]
  - Dysphonia [Not Recovered/Not Resolved]
